FAERS Safety Report 8465427 (Version 2)
Quarter: 2013Q2

REPORT INFORMATION
  Report Type: Spontaneous
  Country: US (occurrence: None)
  Receive Date: 20120227
  Receipt Date: 20120525
  Transmission Date: 20140414
  Serious: No
  Sender: FDA-Public Use
  Company Number: 342887

PATIENT
  Age: 43 Year
  Sex: 0

DRUGS (1)
  1. VICTOZA [Suspect]
     Indication: TYPE 2 DIABETES MELLITUS
     Dosage: SUBCUTANEOUS
     Route: 058

REACTIONS (5)
  - INJECTION SITE ERYTHEMA [None]
  - INJECTION SITE MASS [None]
  - Injection site rash [None]
  - Injection site pruritus [None]
  - Injection site irritation [None]
